FAERS Safety Report 7853442-6 (Version None)
Quarter: 2011Q3

REPORT INFORMATION
  Report Type: 
  Country: None (occurrence: None)
  Receive Date: 20110915
  Receipt Date: 20110617
  Transmission Date: 20111222
  Serious: Yes (Hospitalization)
  Sender: FDA-Public Use
  Company Number: 2011028979

PATIENT
  Age: 24 Year
  Sex: Male
  Weight: 88.4514 kg

DRUGS (23)
  1. PRIVIGEN [Suspect]
     Indication: IDIOPATHIC THROMBOCYTOPENIC PURPURA
     Dosage: SEE IMAGE
     Route: 042
     Dates: start: 20110420
  2. PRIVIGEN [Suspect]
     Indication: IDIOPATHIC THROMBOCYTOPENIC PURPURA
     Dosage: SEE IMAGE
     Route: 042
     Dates: start: 20110421
  3. PRIVIGEN [Suspect]
     Indication: IDIOPATHIC THROMBOCYTOPENIC PURPURA
     Dosage: SEE IMAGE
     Route: 042
     Dates: start: 20110519, end: 20110521
  4. PRIVIGEN [Suspect]
     Indication: IDIOPATHIC THROMBOCYTOPENIC PURPURA
     Dosage: SEE IMAGE
     Route: 042
     Dates: start: 20110419
  5. PRIVIGEN [Suspect]
     Indication: IDIOPATHIC THROMBOCYTOPENIC PURPURA
     Dosage: SEE IMAGE
     Route: 042
     Dates: start: 20110610, end: 20110611
  6. PRIVIGEN [Suspect]
     Indication: IDIOPATHIC THROMBOCYTOPENIC PURPURA
     Dosage: SEE IMAGE
     Route: 042
     Dates: start: 20110419
  7. PRIVIGEN [Suspect]
     Indication: IDIOPATHIC THROMBOCYTOPENIC PURPURA
     Dosage: SEE IMAGE
     Route: 042
     Dates: start: 20110506, end: 20110507
  8. PRIVIGEN [Suspect]
     Indication: IDIOPATHIC THROMBOCYTOPENIC PURPURA
     Dosage: SEE IMAGE
     Route: 042
     Dates: start: 20110610, end: 20110611
  9. PRIVIGEN [Suspect]
     Indication: IDIOPATHIC THROMBOCYTOPENIC PURPURA
     Dosage: SEE IMAGE
     Route: 042
     Dates: start: 20110420
  10. PRIVIGEN [Suspect]
     Indication: IDIOPATHIC THROMBOCYTOPENIC PURPURA
     Dosage: SEE IMAGE
     Route: 042
     Dates: start: 20110419
  11. PRIVIGEN [Suspect]
     Indication: IDIOPATHIC THROMBOCYTOPENIC PURPURA
     Dosage: SEE IMAGE
     Route: 042
     Dates: start: 20110419
  12. PRIVIGEN [Suspect]
     Indication: IDIOPATHIC THROMBOCYTOPENIC PURPURA
     Dosage: SEE IMAGE
     Route: 042
     Dates: start: 20110421
  13. DIPHENHYDRAMINE HCL [Concomitant]
  14. ACETAMINOPHEN [Concomitant]
  15. METHYLPREDNISOLONE [Concomitant]
  16. SERTRALINE HYDROCHLORIDE [Concomitant]
  17. PRIVIGEN [Suspect]
     Route: 042
  18. INSULIN REGULAR (INSULIN) [Concomitant]
  19. POTASSIUM CHLORIDE [Concomitant]
  20. PRIVIGEN [Suspect]
     Route: 042
  21. PRIVIGEN [Suspect]
     Route: 042
  22. SULFAMETHOXAZOLE/TRIMETHOPRIM (BACTRIM /00086101/) [Concomitant]
  23. TRAZODONE HCL [Concomitant]

REACTIONS (3)
  - HAEMOGLOBIN DECREASED [None]
  - ANTI-ERYTHROCYTE ANTIBODY POSITIVE [None]
  - HAEMOLYSIS [None]
